FAERS Safety Report 19709917 (Version 1)
Quarter: 2021Q3

REPORT INFORMATION
  Report Type: Spontaneous
  Country: US (occurrence: US)
  Receive Date: 20210816
  Receipt Date: 20210816
  Transmission Date: 20211014
  Serious: Yes (Other)
  Sender: FDA-Public Use
  Company Number: US-LUPIN PHARMACEUTICALS INC.-2021-14689

PATIENT
  Age: 70 Year
  Sex: Male

DRUGS (6)
  1. CEFUROXIME. [Suspect]
     Active Substance: CEFUROXIME
     Indication: PRODUCT USED FOR UNKNOWN INDICATION
     Dosage: UNK
     Route: 065
  2. FLUCLOXACILLIN [Suspect]
     Active Substance: FLUCLOXACILLIN
     Indication: SKIN TEST
     Dosage: 2 MILLIGRAM PER MILLILITRE
     Route: 065
  3. AMPICILLIN [Suspect]
     Active Substance: AMPICILLIN
     Indication: SKIN TEST
     Dosage: 25 MILLIGRAM PER MILLILITRE
     Route: 065
  4. CEFTRIAXONE. [Suspect]
     Active Substance: CEFTRIAXONE
     Indication: SKIN TEST
     Dosage: 2.5 MILLIGRAM PER MILLILITRE
     Route: 065
  5. PENICILLIN G [Suspect]
     Active Substance: PENICILLIN G
     Indication: SKIN TEST
     Dosage: 10000 INTERNATIONAL UNIT PER MILLILITRE
     Route: 065
  6. CEFAZOLINE [Suspect]
     Active Substance: CEFAZOLIN SODIUM
     Indication: SKIN TEST
     Dosage: 1 MILLIGRAM PER MILLILITRE
     Route: 065

REACTIONS (1)
  - Type I hypersensitivity [Unknown]
